FAERS Safety Report 6972836-4 (Version None)
Quarter: 2010Q3

REPORT INFORMATION
  Report Type: 
  Country: None (occurrence: None)
  Receive Date: 20100909
  Receipt Date: 20100830
  Transmission Date: 20110219
  Serious: Yes (Other)
  Sender: FDA-Public Use
  Company Number: PHHY2010FR57976

PATIENT
  Age: 86 Year
  Sex: Male

DRUGS (2)
  1. RASILEZ [Suspect]
     Indication: HYPERTENSION
     Dosage: 150 MG DAILY
     Dates: start: 20091001, end: 20100601
  2. ATACAND [Suspect]
     Indication: HYPERTENSION
     Dosage: 8 MG DAILY
     Dates: start: 20091001, end: 20100601

REACTIONS (2)
  - BLOOD CREATININE INCREASED [None]
  - RENAL FAILURE [None]
